FAERS Safety Report 12842821 (Version 3)
Quarter: 2017Q1

REPORT INFORMATION
  Report Type: Spontaneous
  Country: US (occurrence: US)
  Receive Date: 20161013
  Receipt Date: 20170113
  Transmission Date: 20170428
  Serious: No
  Sender: FDA-Public Use
  Company Number: US-PFIZER INC-2016478295

PATIENT
  Age: 36 Year
  Sex: Female

DRUGS (4)
  1. METHOTREXATE. [Concomitant]
     Active Substance: METHOTREXATE
     Dosage: UNK
  2. XELJANZ [Suspect]
     Active Substance: TOFACITINIB CITRATE
     Indication: RHEUMATOID ARTHRITIS
     Dosage: 5 MG, 2X/DAY
     Route: 048
     Dates: start: 20160819, end: 20160927
  3. PREDNISONE. [Concomitant]
     Active Substance: PREDNISONE
     Indication: RHEUMATOID ARTHRITIS
     Dosage: 13 MG, UNK
     Dates: start: 2011
  4. GILDESS FE [Concomitant]
     Active Substance: ETHINYL ESTRADIOL\NORETHINDRONE
     Dosage: UNK

REACTIONS (7)
  - Nausea [Recovering/Resolving]
  - Sinusitis [Recovering/Resolving]
  - Dizziness [Recovered/Resolved]
  - Sinus congestion [Recovered/Resolved]
  - Weight increased [Recovered/Resolved]
  - Gastrointestinal disorder [Recovering/Resolving]
  - Fluid retention [Recovering/Resolving]

NARRATIVE: CASE EVENT DATE: 20160920
